FAERS Safety Report 8947435 (Version 2)
Quarter: 2013Q1

REPORT INFORMATION
  Report Type: Report from Study
  Country: US (occurrence: US)
  Receive Date: 20121204
  Receipt Date: 20130108
  Transmission Date: 20140127
  Serious: Yes (Hospitalization, Other)
  Sender: FDA-Public Use
  Company Number: US-ROCHE-1160908

PATIENT
  Age: 43 None
  Sex: Male
  Weight: 90.8 kg

DRUGS (10)
  1. OMALIZUMAB [Suspect]
     Indication: ASTHMA
     Dosage: TWO INJECTION
     Route: 058
     Dates: start: 2004, end: 201208
  2. OMALIZUMAB [Suspect]
     Indication: ASTHMA
     Route: 058
     Dates: start: 20121022, end: 20121022
  3. COMBIVENT [Concomitant]
     Indication: ASTHMA
     Route: 050
  4. ADVAIR [Concomitant]
     Indication: ASTHMA
     Dosage: 500/50
     Route: 050
  5. VENTOLIN [Concomitant]
  6. ALBUTEROL [Concomitant]
  7. PROAIR (UNITED STATES) [Concomitant]
  8. PREDNISONE [Concomitant]
     Indication: ASTHMA
     Route: 048
  9. IPRATROPIUM [Concomitant]
  10. KLONOPIN [Concomitant]
     Indication: ANXIETY
     Route: 048

REACTIONS (4)
  - Pneumonia [Recovered/Resolved]
  - Headache [Not Recovered/Not Resolved]
  - Rosacea [Not Recovered/Not Resolved]
  - Asthma [Recovered/Resolved]
